FAERS Safety Report 5895533-5 (Version None)
Quarter: 2008Q3

REPORT INFORMATION
  Report Type: 
  Country: None (occurrence: None)
  Receive Date: 20080924
  Receipt Date: 20080919
  Transmission Date: 20090109
  Serious: Yes (Hospitalization)
  Sender: FDA-Public Use
  Company Number: FR-BRISTOL-MYERS SQUIBB COMPANY-14342547

PATIENT
  Age: 30 Year
  Sex: Male

DRUGS (2)
  1. ABILIFY [Suspect]
     Indication: BIPOLAR DISORDER
     Dates: start: 20060101, end: 20080901
  2. CYMBALTA [Concomitant]
     Dates: start: 20080101, end: 20080901

REACTIONS (8)
  - ACUTE ABDOMEN [None]
  - BLOOD IMMUNOGLOBULIN E INCREASED [None]
  - DIARRHOEA [None]
  - DYSPEPSIA [None]
  - FOOD INTOLERANCE [None]
  - TRANSAMINASES INCREASED [None]
  - VOMITING [None]
  - WEIGHT DECREASED [None]
